FAERS Safety Report 7157186-8 (Version None)
Quarter: 2010Q4

REPORT INFORMATION
  Report Type: 
  Country: None (occurrence: None)
  Receive Date: 20101214
  Receipt Date: 20091217
  Transmission Date: 20110411
  Serious: No
  Sender: FDA-Public Use
  Company Number: US-ASTRAZENECA-2009SE32635

PATIENT
  Age: 69 Year
  Sex: Male
  Weight: 65.8 kg

DRUGS (2)
  1. CRESTOR [Suspect]
     Indication: HYPERLIPIDAEMIA
     Route: 048
     Dates: start: 20060101
  2. LEXAPRO [Concomitant]
     Indication: INSOMNIA

REACTIONS (3)
  - CONTUSION [None]
  - HAEMORRHAGE [None]
  - PRURITUS [None]
